FAERS Safety Report 10025213 (Version 1)
Quarter: 2014Q1

REPORT INFORMATION
  Report Type: Spontaneous
  Country: US (occurrence: US)
  Receive Date: 20140320
  Receipt Date: 20140320
  Transmission Date: 20141002
  Serious: Yes (Death)
  Sender: FDA-Public Use
  Company Number: US-BRISTOL-MYERS SQUIBB COMPANY-20481404

PATIENT
  Sex: Male

DRUGS (3)
  1. BYETTA [Suspect]
     Dates: start: 200908, end: 201009
  2. JANUVIA [Suspect]
     Dates: start: 200710, end: 200804
  3. JANUMET [Suspect]
     Dates: start: 200804, end: 200908

REACTIONS (1)
  - Pancreatic carcinoma [Fatal]
